FAERS Safety Report 16888866 (Version 2)
Quarter: 2019Q4

REPORT INFORMATION
  Report Type: Spontaneous
  Country: BE (occurrence: BE)
  Receive Date: 20191007
  Receipt Date: 20191114
  Transmission Date: 20200122
  Serious: Yes (Hospitalization, Other)
  Sender: FDA-Public Use
  Company Number: BE-009507513-1910BEL004097

PATIENT
  Age: 64 Year
  Sex: Male
  Weight: 92 kg

DRUGS (6)
  1. EUTHYROX [Concomitant]
     Active Substance: LEVOTHYROXINE SODIUM
     Indication: HYPOTHYROIDISM
     Dosage: TOTAL DAILY DOSE 125 MG
  2. NASONEX [Suspect]
     Active Substance: MOMETASONE FUROATE
     Indication: RHINITIS
     Dosage: SPRAY ONCE A DAY
     Route: 045
     Dates: start: 201711, end: 201908
  3. PANTOPRAZOLE [Concomitant]
     Active Substance: PANTOPRAZOLE
     Indication: GASTROOESOPHAGEAL REFLUX DISEASE
     Dosage: TOTAL DAILY DOSE 40 MG
  4. ASAFLOW [Concomitant]
     Active Substance: ASPIRIN
     Dosage: TOTAL DAILY DOSAGE 80 MG
  5. SIMVASTATIN. [Concomitant]
     Active Substance: SIMVASTATIN
     Indication: LIPIDS ABNORMAL
     Dosage: TOTAL DAILY DOSAGE 20 MG
  6. COVERAM [Concomitant]
     Active Substance: AMLODIPINE\PERINDOPRIL
     Indication: HYPERTENSION
     Dosage: TOTAL DAILY DOSAGE PERINDOPRIL 5 MG, AMLODIPINE 5 MG

REACTIONS (4)
  - Cerebrovascular accident [Unknown]
  - Papillitis [Unknown]
  - Pneumonia [Unknown]
  - Choroiditis [Recovered/Resolved]

NARRATIVE: CASE EVENT DATE: 2019
